APPROVED DRUG PRODUCT: INDAPAMIDE
Active Ingredient: INDAPAMIDE
Strength: 2.5MG
Dosage Form/Route: TABLET;ORAL
Application: A074722 | Product #002 | TE Code: AB
Applicant: ACTAVIS ELIZABETH LLC
Approved: Jun 17, 1996 | RLD: No | RS: No | Type: RX